FAERS Safety Report 8348224-5 (Version None)
Quarter: 2012Q2

REPORT INFORMATION
  Report Type: 
  Country: None (occurrence: None)
  Receive Date: 20120509
  Receipt Date: 20120504
  Transmission Date: 20120825
  Serious: Yes (Hospitalization, Other)
  Sender: FDA-Public Use
  Company Number: GXKR2012DE001645

PATIENT

DRUGS (1)
  1. CITALOPRAM HYDROBROMIDE [Suspect]
     Indication: DEPRESSION
     Dosage: 30 MG, DAILY
     Route: 048
     Dates: end: 20111017

REACTIONS (2)
  - ABORTION MISSED [None]
  - MATERNAL EXPOSURE DURING PREGNANCY [None]
